FAERS Safety Report 6603793-8 (Version None)
Quarter: 2010Q1

REPORT INFORMATION
  Report Type: 
  Country: None (occurrence: None)
  Receive Date: 20100226
  Receipt Date: 20090213
  Transmission Date: 20100710
  Serious: No
  Sender: FDA-Public Use
  Company Number: A0766352A

PATIENT
  Age: 42 Year
  Sex: Female

DRUGS (6)
  1. LAMICTAL CD [Suspect]
     Indication: DRUG USE FOR UNKNOWN INDICATION
     Dosage: 200MG PER DAY
     Route: 048
     Dates: start: 20080501, end: 20081216
  2. PAXIL [Suspect]
     Indication: DRUG USE FOR UNKNOWN INDICATION
     Dosage: 40MG PER DAY
     Route: 048
     Dates: end: 20081204
  3. PROZAC [Concomitant]
  4. GEODON [Concomitant]
  5. INVEGA [Concomitant]
  6. ADDERALL 30 [Concomitant]

REACTIONS (1)
  - DRUG INEFFECTIVE [None]
